FAERS Safety Report 5824922-X (Version None)
Quarter: 2008Q3

REPORT INFORMATION
  Report Type: 
  Country: None (occurrence: None)
  Receive Date: 20080728
  Receipt Date: 20080716
  Transmission Date: 20090109
  Serious: Yes (Death)
  Sender: FDA-Public Use
  Company Number: AU-PFIZER INC-2008033900

PATIENT
  Sex: Female

DRUGS (2)
  1. SUTENT [Suspect]
     Indication: RENAL CELL CARCINOMA
     Route: 048
  2. MORPHINE [Concomitant]

REACTIONS (1)
  - MYOCARDIAL INFARCTION [None]
